FAERS Safety Report 22357264 (Version 7)
Quarter: 2024Q1

REPORT INFORMATION
  Report Type: Report from Study
  Country: CA (occurrence: CA)
  Receive Date: 20230524
  Receipt Date: 20240229
  Transmission Date: 20240409
  Serious: Yes (Other)
  Sender: FDA-Public Use
  Company Number: CA-JNJFOC-20230436584

PATIENT
  Age: 40 Year
  Sex: Female

DRUGS (4)
  1. REMICADE [Suspect]
     Active Substance: INFLIXIMAB
     Indication: Behcet^s syndrome
     Dosage: EXPIRY DATE: -SEP-2025. LAST INFUSION WAS ON 11-SEP-2023.
     Route: 042
  2. PREDNISONE [Suspect]
     Active Substance: PREDNISONE
     Indication: Product used for unknown indication
     Route: 065
  3. OTEZLA [Concomitant]
     Active Substance: APREMILAST
     Indication: Product used for unknown indication
     Route: 065
     Dates: start: 20230503
  4. PREDNISONE [Concomitant]
     Active Substance: PREDNISONE
     Indication: Product used for unknown indication
     Route: 065

REACTIONS (16)
  - Behcet^s syndrome [Recovering/Resolving]
  - Ulcer haemorrhage [Not Recovered/Not Resolved]
  - Tooth infection [Unknown]
  - COVID-19 [Unknown]
  - Skin infection [Not Recovered/Not Resolved]
  - Pain [Unknown]
  - Dysuria [Unknown]
  - Condition aggravated [Unknown]
  - Swelling [Unknown]
  - Stress [Unknown]
  - Weight increased [Not Recovered/Not Resolved]
  - Pain [Unknown]
  - Fatigue [Unknown]
  - Treatment noncompliance [Unknown]
  - Pyrexia [Recovered/Resolved]
  - Tooth extraction [Unknown]

NARRATIVE: CASE EVENT DATE: 20220519
